FAERS Safety Report 6824740-X (Version None)
Quarter: 2010Q3

REPORT INFORMATION
  Report Type: 
  Country: None (occurrence: None)
  Receive Date: 20100708
  Receipt Date: 20061115
  Transmission Date: 20110219
  Serious: No
  Sender: FDA-Public Use
  Company Number: US-PFIZER INC-2006143584

PATIENT
  Sex: Male
  Weight: 78.02 kg

DRUGS (5)
  1. CHANTIX [Suspect]
     Indication: SMOKING CESSATION THERAPY
     Dates: start: 20061101
  2. ALBUTEROL [Concomitant]
  3. SEREVENT [Concomitant]
  4. MONTELUKAST SODIUM [Concomitant]
  5. CLARINEX [Concomitant]

REACTIONS (2)
  - PAIN [None]
  - PARAESTHESIA [None]
